FAERS Safety Report 6825485-2 (Version None)
Quarter: 2010Q3

REPORT INFORMATION
  Report Type: 
  Country: None (occurrence: None)
  Receive Date: 20100708
  Receipt Date: 20070405
  Transmission Date: 20110219
  Serious: No
  Sender: FDA-Public Use
  Company Number: US-PFIZER INC-2007001512

PATIENT
  Sex: Female
  Weight: 65.77 kg

DRUGS (5)
  1. CHANTIX [Suspect]
     Indication: SMOKING CESSATION THERAPY
     Dates: start: 20061214
  2. PROMETHAZINE [Suspect]
     Indication: NAUSEA
     Dates: start: 20061201
  3. CHOLESTEROL- AND TRIGLYCERIDE REDUCERS [Concomitant]
  4. ANTIDEPRESSANTS [Concomitant]
  5. PREVACID [Concomitant]
     Indication: GASTROINTESTINAL DISORDER

REACTIONS (5)
  - ABDOMINAL DISCOMFORT [None]
  - BALANCE DISORDER [None]
  - NAUSEA [None]
  - SOMNOLENCE [None]
  - THINKING ABNORMAL [None]
